FAERS Safety Report 12293609 (Version 3)
Quarter: 2020Q1

REPORT INFORMATION
  Report Type: Spontaneous
  Country: US (occurrence: US)
  Receive Date: 20160421
  Receipt Date: 20200227
  Transmission Date: 20200409
  Serious: No
  Sender: FDA-Public Use
  Company Number: US-PFIZER INC-2016197495

PATIENT
  Age: 65 Year
  Sex: Female
  Weight: 95.25 kg

DRUGS (3)
  1. PREMARIN [Suspect]
     Active Substance: ESTROGENS, CONJUGATED
     Indication: HOT FLUSH
     Dosage: 0.3 MG, UNK
  2. LEVOTHYROXINE. [Concomitant]
     Active Substance: LEVOTHYROXINE
     Indication: THYROID DISORDER
     Dosage: 125MCG
     Dates: start: 2000
  3. PREMARIN [Suspect]
     Active Substance: ESTROGENS, CONJUGATED
     Dosage: 1.25MG, TABLETS, BY MOUTH, ONCE A DAY
     Route: 048
     Dates: start: 2000

REACTIONS (9)
  - Drug ineffective [Unknown]
  - Product prescribing error [Unknown]
  - Incorrect product administration duration [Unknown]
  - Intentional product misuse [Unknown]
  - Insomnia [Unknown]
  - Emotional disorder [Unknown]
  - Discomfort [Unknown]
  - Feeling abnormal [Unknown]
  - Product dispensing error [Unknown]

NARRATIVE: CASE EVENT DATE: 2016
